FAERS Safety Report 6236644-4 (Version None)
Quarter: 2009Q2

REPORT INFORMATION
  Report Type: 
  Country: None (occurrence: None)
  Receive Date: 20090619
  Receipt Date: 20081028
  Transmission Date: 20091009
  Serious: No
  Sender: FDA-Public Use
  Company Number: US-ASTRAZENECA-2008UW24110

PATIENT
  Age: 39 Year
  Sex: Female

DRUGS (4)
  1. ATACAND [Suspect]
     Indication: HYPERTENSION
     Dosage: 4 MG
     Route: 048
  2. ATACAND [Suspect]
     Dosage: 8 MG
     Route: 048
  3. COLON CLEANSE [Concomitant]
     Dates: start: 20081026
  4. DETOX OVER THE COUNTER REMEDY [Concomitant]

REACTIONS (6)
  - ALANINE AMINOTRANSFERASE INCREASED [None]
  - ASPARTATE AMINOTRANSFERASE INCREASED [None]
  - BLOOD ALKALINE PHOSPHATASE INCREASED [None]
  - BLOOD PRESSURE INCREASED [None]
  - DRUG INEFFECTIVE [None]
  - TRANSAMINASES INCREASED [None]
